FAERS Safety Report 4761490-8 (Version None)
Quarter: 2005Q3

REPORT INFORMATION
  Report Type: 
  Country: None (occurrence: None)
  Receive Date: 20050906
  Receipt Date: 20011022
  Transmission Date: 20060218
  Serious: Yes (Death)
  Sender: FDA-Public Use
  Company Number: FR-GLAXOSMITHKLINE-B0124513A

PATIENT
  Age: 64 Year
  Sex: Male
  Weight: 72 kg

DRUGS (6)
  1. COMBIVIR [Suspect]
     Indication: HIV INFECTION
     Dosage: 2UNIT PER DAY
     Route: 048
     Dates: start: 19980615
  2. MIRTAZAPINE [Suspect]
     Indication: DYSTHYMIC DISORDER
     Route: 048
     Dates: start: 20001215
  3. ISOSORBIDE DINITRATE [Suspect]
     Indication: ANGINA PECTORIS
     Route: 048
     Dates: start: 19910615
  4. DILTIAZEM HYDROCHLORIDE [Suspect]
     Indication: ESSENTIAL HYPERTENSION
     Route: 048
     Dates: start: 19910615
  5. SIMVASTATIN [Suspect]
     Indication: HYPERCHOLESTEROLAEMIA
     Route: 048
     Dates: start: 19910615
  6. NEVIRAPINE [Suspect]
     Indication: HIV INFECTION
     Dosage: 600MG PER DAY
     Route: 048
     Dates: start: 20010112

REACTIONS (3)
  - CARDIAC ARREST [None]
  - ELECTROCARDIOGRAM ABNORMAL [None]
  - SHOCK [None]
